FAERS Safety Report 5262494-1 (Version None)
Quarter: 2007Q1

REPORT INFORMATION
  Report Type: 
  Country: None (occurrence: None)
  Receive Date: 20070312
  Receipt Date: 20070226
  Transmission Date: 20070707
  Serious: Yes (Other)
  Sender: FDA-Public Use
  Company Number: PHNU2006DE03574

PATIENT
  Sex: Female

DRUGS (1)
  1. COMBIPATCH [Suspect]
     Route: 062

REACTIONS (4)
  - APPLICATION SITE REACTION [None]
  - BURNS THIRD DEGREE [None]
  - MASS EXCISION [None]
  - SKIN NECROSIS [None]
